FAERS Safety Report 9461649 (Version 2)
Quarter: 2013Q3

REPORT INFORMATION
  Report Type: Spontaneous
  Country: DE (occurrence: JP)
  Receive Date: 20130816
  Receipt Date: 20130829
  Transmission Date: 20140515
  Serious: Yes (Hospitalization)
  Sender: FDA-Public Use
  Company Number: JP-FRI-1000047768

PATIENT
  Age: 84 Year
  Sex: Female

DRUGS (10)
  1. MEMANTINE [Suspect]
     Indication: DEMENTIA ALZHEIMER^S TYPE
     Dosage: 5 MG
     Route: 048
     Dates: start: 201209, end: 2012
  2. MEMANTINE [Suspect]
     Dosage: 10 MG
     Route: 048
     Dates: start: 2012, end: 2012
  3. MEMANTINE [Suspect]
     Dosage: 15 MG
     Route: 048
     Dates: start: 2012, end: 2012
  4. MEMANTINE [Suspect]
     Indication: DEMENTIA ALZHEIMER^S TYPE
     Dosage: 20 MG
     Route: 048
     Dates: start: 2012, end: 20130729
  5. MEMANTINE [Suspect]
     Dosage: 10 MG
     Route: 048
     Dates: start: 20130802, end: 20130804
  6. AMLODIN [Concomitant]
  7. TAKEPRON [Concomitant]
  8. LAC-B [Concomitant]
  9. FERO-GRADUMET [Concomitant]
  10. ACTONEL [Concomitant]

REACTIONS (1)
  - Altered state of consciousness [Recovering/Resolving]
